FAERS Safety Report 5118497-0 (Version None)
Quarter: 2006Q4

REPORT INFORMATION
  Report Type: 
  Country: None (occurrence: None)
  Receive Date: 20061002
  Receipt Date: 20060713
  Transmission Date: 20070319
  Serious: Yes (Hospitalization)
  Sender: FDA-Public Use
  Company Number: US-BAYER-200614570BWH

PATIENT
  Age: 51 Year
  Sex: Female
  Weight: 126 kg

DRUGS (7)
  1. AVELOX [Suspect]
     Indication: SKIN ULCER
     Dosage: TOTAL DAILY DOSE: 400 MG  UNIT DOSE: 400 MG
     Route: 048
     Dates: start: 20060613, end: 20060619
  2. TENORMIN [Concomitant]
  3. DYAZIDE [Concomitant]
  4. PROVERA [Concomitant]
  5. ATENOL [Concomitant]
  6. GABAPENTIN [Concomitant]
  7. VALIUM [Concomitant]

REACTIONS (5)
  - BACK PAIN [None]
  - DYSSTASIA [None]
  - GAIT DISTURBANCE [None]
  - PAIN IN EXTREMITY [None]
  - SPINAL COLUMN STENOSIS [None]
